FAERS Safety Report 9752332 (Version 3)
Quarter: 2014Q1

REPORT INFORMATION
  Report Type: Spontaneous
  Country: JP (occurrence: JP)
  Receive Date: 20131213
  Receipt Date: 20140220
  Transmission Date: 20141002
  Serious: Yes (Other)
  Sender: FDA-Public Use
  Company Number: JP-AMGEN-JPNSP2013086509

PATIENT
  Age: 8 Decade
  Sex: Female

DRUGS (12)
  1. VECTIBIX [Suspect]
     Indication: COLON CANCER
     Dosage: 6 MG/KG, Q2WK
     Route: 041
     Dates: start: 201207
  2. VECTIBIX [Suspect]
     Dosage: 6 MG/KG, Q2WK
     Route: 041
     Dates: start: 20130702
  3. VECTIBIX [Suspect]
     Dosage: 6 MG/KG, Q2WK
     Route: 041
     Dates: start: 20140121
  4. IRINOTECAN HYDROCHLORIDE [Concomitant]
     Indication: COLON CANCER
     Dosage: UNK UNK, Q2WK
     Route: 041
     Dates: start: 201207
  5. IRINOTECAN HYDROCHLORIDE [Concomitant]
     Dosage: UNK UNK, Q2WK
     Route: 041
     Dates: start: 20130702
  6. IRINOTECAN HYDROCHLORIDE [Concomitant]
     Dosage: UNK UNK, Q2WK
     Route: 041
     Dates: start: 20140121
  7. FLUOROURACIL [Concomitant]
     Indication: COLON CANCER
     Dosage: UNK UNK, Q2WK
     Route: 042
     Dates: start: 201207
  8. FLUOROURACIL [Concomitant]
     Dosage: UNK UNK, Q2WK
     Route: 042
     Dates: start: 20130702
  9. FLUOROURACIL [Concomitant]
     Dosage: UNK UNK, Q2WK
     Route: 042
     Dates: start: 20140121
  10. CALCIUM LEVOFOLINATE [Concomitant]
     Indication: COLON CANCER
     Dosage: UNK UNK, Q2WK
     Route: 041
     Dates: start: 201207
  11. CALCIUM LEVOFOLINATE [Concomitant]
     Dosage: UNK UNK, Q2WK
     Route: 041
     Dates: start: 20130702
  12. CALCIUM LEVOFOLINATE [Concomitant]
     Dosage: UNK UNK, Q2WK
     Route: 041
     Dates: start: 20140121

REACTIONS (2)
  - Dermatitis acneiform [Recovering/Resolving]
  - Skin disorder [Unknown]
